FAERS Safety Report 22713531 (Version 2)
Quarter: 2024Q3

REPORT INFORMATION
  Report Type: Spontaneous
  Country: US (occurrence: US)
  Receive Date: 20230717
  Receipt Date: 20240715
  Transmission Date: 20241016
  Serious: No
  Sender: NOVO NORDISK
  Company Number: US-NOVOPROD-1048860

PATIENT
  Sex: Male

DRUGS (3)
  1. REBINYN [Suspect]
     Active Substance: COAGULATION FACTOR IX (RECOMBINANT), GLYCOPEGYLATED
     Dosage: 1000IU
     Dates: start: 20230305
  2. REBINYN [Suspect]
     Active Substance: COAGULATION FACTOR IX (RECOMBINANT), GLYCOPEGYLATED
     Dosage: 2000IU
     Dates: start: 20230305
  3. REBINYN [Suspect]
     Active Substance: COAGULATION FACTOR IX (RECOMBINANT), GLYCOPEGYLATED
     Indication: Product used for unknown indication
     Dosage: 500IU
     Dates: start: 20230305

REACTIONS (2)
  - Mouth haemorrhage [Recovered/Resolved]
  - Arthralgia [Recovered/Resolved]
